FAERS Safety Report 12262997 (Version 1)
Quarter: 2016Q2

REPORT INFORMATION
  Report Type: Spontaneous
  Country: US (occurrence: US)
  Receive Date: 20160413
  Receipt Date: 20160413
  Transmission Date: 20160815
  Serious: No
  Sender: FDA-Public Use
  Company Number: US-VIFOR (INTERNATIONAL) INC.-VIT-2016-01412

PATIENT
  Age: 65 Year
  Sex: Female
  Weight: 95.5 kg

DRUGS (1)
  1. MIRCERA [Suspect]
     Active Substance: METHOXY POLYETHYLENE GLYCOL-EPOETIN BETA
     Indication: PRODUCT USED FOR UNKNOWN INDICATION

REACTIONS (2)
  - Flushing [Unknown]
  - Nausea [Unknown]

NARRATIVE: CASE EVENT DATE: 20150513
